FAERS Safety Report 17787591 (Version 2)
Quarter: 2020Q2

REPORT INFORMATION
  Report Type: Report from Study
  Country: BE (occurrence: BE)
  Receive Date: 20200514
  Receipt Date: 20200526
  Transmission Date: 20200714
  Serious: Yes (Other)
  Sender: FDA-Public Use
  Company Number: NVSC2020BE085534

PATIENT
  Age: 8 Month
  Sex: Male
  Weight: 7.48 kg

DRUGS (5)
  1. ONASEMNOGENE ABEPARVOVEC [Suspect]
     Active Substance: ONASEMNOGENE ABEPARVOVEC
     Indication: SPINAL MUSCULAR ATROPHY
     Dosage: 38.5 ML, ONCE/SINGLE
     Route: 042
     Dates: start: 20200318
  2. D-CURE [Concomitant]
     Active Substance: CHOLECALCIFEROL
     Indication: PRODUCT USED FOR UNKNOWN INDICATION
     Dosage: 6 DF (DROPS)
     Route: 065
     Dates: start: 2019
  3. PREDNISOLONE. [Concomitant]
     Active Substance: PREDNISOLONE
     Indication: PRODUCT USED FOR UNKNOWN INDICATION
     Dosage: 7 MG, QD
     Route: 065
     Dates: start: 20200317
  4. OMEPRAZOLE. [Concomitant]
     Active Substance: OMEPRAZOLE
     Indication: PRODUCT USED FOR UNKNOWN INDICATION
     Dosage: 2 DF (7 MG)
     Route: 065
     Dates: start: 20200317
  5. EUSAPRIM [Concomitant]
     Active Substance: SULFAMETHOXAZOLE\TRIMETHOPRIM
     Indication: PRODUCT USED FOR UNKNOWN INDICATION
     Dosage: 2 DF (2.5 ML)
     Route: 065
     Dates: start: 20200317

REACTIONS (7)
  - Haemoglobin decreased [Unknown]
  - Haematocrit decreased [Unknown]
  - Liver function test increased [Not Recovered/Not Resolved]
  - Thrombocytopenia [Recovered/Resolved]
  - Red blood cell count decreased [Unknown]
  - Pyrexia [Recovered/Resolved]
  - Blood creatinine decreased [Unknown]

NARRATIVE: CASE EVENT DATE: 20200320
